FAERS Safety Report 25756090 (Version 2)
Quarter: 2025Q4

REPORT INFORMATION
  Report Type: Report from Study
  Country: CA (occurrence: CA)
  Receive Date: 20250903
  Receipt Date: 20251119
  Transmission Date: 20260117
  Serious: Yes (Other)
  Sender: PFIZER
  Company Number: CA-PFIZER INC-202500171956

PATIENT
  Age: 66 Year
  Sex: Female

DRUGS (10)
  1. HADLIMA [Suspect]
     Active Substance: ADALIMUMAB-BWWD
     Indication: Crohn^s disease
     Dosage: 40 MG, 1 EVERY 2 WEEKS
  2. AMITRIPTYLINE [Concomitant]
     Active Substance: AMITRIPTYLINE
     Dosage: 3 DF
  3. CARBAMAZEPINE [Concomitant]
     Active Substance: CARBAMAZEPINE
     Dosage: 1 DF, 1 EVERY 8 HOURS
  4. HIDROMORFONA [HYDROMORPHONE] [Concomitant]
     Dosage: 1 DF, 1 EVERY 12 HOURS
  5. HYDROCHLOROTHIAZIDE\VALSARTAN [Concomitant]
     Active Substance: HYDROCHLOROTHIAZIDE\VALSARTAN
     Dosage: 1 DF, 1 EVERY 1 DAY
  6. MESALAMINE [Concomitant]
     Active Substance: MESALAMINE
     Dosage: 2 DF, 1 EVERY 8 HOURS
  7. METOCLOPRAMIDE [Concomitant]
     Active Substance: METOCLOPRAMIDE
     Dosage: 1 DF, 1 EVERY 12 HOURS
  8. NIFEDIPINE [Concomitant]
     Active Substance: NIFEDIPINE
     Dosage: 1 DF, 1 EVERY 1 DAY
  9. ALBUTEROL [Concomitant]
     Active Substance: ALBUTEROL
     Dosage: 1 EVERY 6 HOURS
  10. SERTRALINE [Concomitant]
     Active Substance: SERTRALINE HYDROCHLORIDE
     Dosage: 1 DF, 1 EVERY 1 DAY

REACTIONS (4)
  - Crohn^s disease [Recovering/Resolving]
  - Gastrointestinal infection [Recovering/Resolving]
  - Neuropathy peripheral [Recovering/Resolving]
  - Weight decreased [Recovering/Resolving]
